FAERS Safety Report 8500512-5 (Version None)
Quarter: 2012Q3

REPORT INFORMATION
  Report Type: 
  Country: None (occurrence: None)
  Receive Date: 20120710
  Receipt Date: 20120703
  Transmission Date: 20120928
  Serious: Yes (Other)
  Sender: FDA-Public Use
  Company Number: CA-ROCHE-1025310

PATIENT
  Sex: Male

DRUGS (6)
  1. VENTOLIN [Concomitant]
  2. FLOVENT [Concomitant]
  3. PREDNISONE [Concomitant]
  4. ADVAIR DISKUS 100/50 [Concomitant]
  5. SINGULAIR [Concomitant]
  6. XOLAIR [Suspect]
     Indication: ASTHMA
     Route: 058
     Dates: start: 20111026

REACTIONS (6)
  - NASOPHARYNGITIS [None]
  - HYPERTENSION [None]
  - ARTHRALGIA [None]
  - HEADACHE [None]
  - RIB FRACTURE [None]
  - OSTEONECROSIS [None]
